FAERS Safety Report 4663953-2 (Version None)
Quarter: 2005Q2

REPORT INFORMATION
  Report Type: 
  Country: None (occurrence: None)
  Receive Date: 20050428
  Receipt Date: 20041119
  Transmission Date: 20051028
  Serious: Yes (Hospitalization)
  Sender: FDA-Public Use
  Company Number: US-2004-035093

PATIENT
  Age: 66 Year
  Sex: 0
  Weight: 86.6 kg

DRUGS (4)
  1. LEUKINE [Suspect]
     Indication: COLONY STIMULATING FACTOR PROPHYLAXIS
     Dosage: 500 UG, 1X/DAY, SUBCUTANEOUS
     Route: 058
     Dates: start: 20040911, end: 20041008
  2. FLUDARA [Concomitant]
  3. RITUXAN [Concomitant]
  4. CYTOXAN [Concomitant]

REACTIONS (1)
  - SYNCOPE [None]
